FAERS Safety Report 8316945-6 (Version None)
Quarter: 2012Q2

REPORT INFORMATION
  Report Type: 
  Country: None (occurrence: None)
  Receive Date: 20120425
  Receipt Date: 20120420
  Transmission Date: 20120825
  Serious: Yes (Disabling, Other)
  Sender: FDA-Public Use
  Company Number: ACO_30118_2012

PATIENT
  Age: 68 Year
  Sex: Female
  Weight: 54.4 kg

DRUGS (6)
  1. LISINOPRIL [Concomitant]
  2. AMPYRA [Suspect]
     Indication: GAIT DISTURBANCE
     Dosage: 10 MG, BID, ORAL
     Route: 048
     Dates: start: 20100101
  3. PAXIL [Concomitant]
  4. COPAXONE [Concomitant]
  5. COUMADIN [Concomitant]
  6. OXYBUTYNIN [Concomitant]

REACTIONS (2)
  - DYSSTASIA [None]
  - DRUG DOSE OMISSION [None]
